FAERS Safety Report 6087030-1 (Version None)
Quarter: 2009Q1

REPORT INFORMATION
  Report Type: 
  Country: None (occurrence: None)
  Receive Date: 20090223
  Receipt Date: 20090212
  Transmission Date: 20090719
  Serious: No
  Sender: FDA-Public Use
  Company Number: PHHY2009AT00461

PATIENT
  Sex: Male

DRUGS (2)
  1. TASIGNA [Suspect]
     Indication: CHRONIC MYELOID LEUKAEMIA
     Dosage: 200 MG, QID
     Dates: start: 20081219, end: 20090105
  2. TASIGNA [Suspect]
     Dosage: 200 MG, BID
     Dates: start: 20090204

REACTIONS (1)
  - BLOOD CREATINE PHOSPHOKINASE INCREASED [None]
